FAERS Safety Report 6510906-5 (Version None)
Quarter: 2009Q4

REPORT INFORMATION
  Report Type: 
  Country: None (occurrence: None)
  Receive Date: 20091222
  Receipt Date: 20090202
  Transmission Date: 20100525
  Serious: No
  Sender: FDA-Public Use
  Company Number: US-ASTRAZENECA-2009UW02917

PATIENT
  Age: 80 Year
  Sex: Female

DRUGS (9)
  1. CRESTOR [Suspect]
     Indication: BLOOD CHOLESTEROL
     Route: 048
     Dates: start: 20081101
  2. DIOVAN [Concomitant]
  3. FELODIPINE [Concomitant]
  4. NEXIUM [Concomitant]
     Route: 048
  5. ADVAIR DISKUS 100/50 [Concomitant]
  6. SINGULAIR [Concomitant]
  7. ASPIRIN [Concomitant]
  8. ALACLEAR [Concomitant]
  9. CALTRATE [Concomitant]

REACTIONS (2)
  - BONE PAIN [None]
  - PERIPHERAL COLDNESS [None]
